FAERS Safety Report 8844885 (Version 1)
Quarter: 2012Q4

REPORT INFORMATION
  Report Type: 
  Country: FR (occurrence: FR)
  Receive Date: 20121017
  Receipt Date: 20121017
  Transmission Date: 20130627
  Serious: Yes (Hospitalization)
  Sender: FDA-Public Use
  Company Number: FR-PFIZER INC-2012256438

PATIENT
  Age: 33 Year
  Sex: Female

DRUGS (13)
  1. INIPOMP [Suspect]
     Dosage: 20 mg daily
     Route: 048
     Dates: start: 20120614, end: 20120917
  2. TAZOCILLINE [Suspect]
     Indication: OSTEITIS
     Dosage: 12 g/1.5 g
     Route: 042
     Dates: start: 20120821, end: 20120921
  3. THYROZOL [Suspect]
     Indication: HYPERTHYROIDISM
     Dosage: 10 mg
     Route: 048
     Dates: start: 201108, end: 201206
  4. THYROZOL [Suspect]
     Dosage: 10 mg
     Route: 048
     Dates: start: 20120823, end: 20120917
  5. CIFLOX [Concomitant]
     Indication: OSTEITIS
     Dosage: 800 mg
     Route: 042
     Dates: start: 20120821
  6. CYMBALTA [Concomitant]
     Dosage: 30 mg
     Route: 048
     Dates: start: 20120614
  7. TARDYFERON [Concomitant]
     Dosage: 2 dosage forms (DF)
     Route: 048
     Dates: start: 20120827
  8. ATARAX [Concomitant]
     Dosage: 2 dosage forms (DF)
     Route: 048
     Dates: start: 20120612
  9. LYRICA [Concomitant]
     Dosage: 0.5 dosage form (DF)
     Route: 048
     Dates: start: 20120614, end: 20120730
  10. LYRICA [Concomitant]
     Dosage: 1.5 dosage forms (DF)
     Route: 048
     Dates: start: 20120731, end: 20120809
  11. LYRICA [Concomitant]
     Dosage: 2 dosage forms (DF)
     Route: 048
     Dates: start: 20120810
  12. TRAMADOL [Concomitant]
     Dosage: As required
  13. ACTISKENAN [Concomitant]
     Dosage: As required

REACTIONS (1)
  - Agranulocytosis [Recovered/Resolved]
